FAERS Safety Report 10108943 (Version 1)
Quarter: 2014Q2

REPORT INFORMATION
  Report Type: Spontaneous
  Country: US (occurrence: US)
  Receive Date: 20140425
  Receipt Date: 20140425
  Transmission Date: 20141212
  Serious: Yes (Other)
  Sender: FDA-Public Use
  Company Number: US-JNJFOC-20140413972

PATIENT
  Sex: Female
  Weight: 88.45 kg

DRUGS (5)
  1. INVOKANA [Suspect]
     Indication: DIABETES MELLITUS
     Route: 048
     Dates: start: 201312
  2. METFORMIN [Concomitant]
     Indication: DIABETES MELLITUS
     Route: 048
     Dates: start: 2013
  3. INSULIN [Concomitant]
     Indication: DIABETES MELLITUS
     Dates: start: 2006
  4. SYNTHROID [Concomitant]
     Route: 048
  5. LASIX [Concomitant]
     Route: 048

REACTIONS (3)
  - Visual impairment [Unknown]
  - Pollakiuria [Not Recovered/Not Resolved]
  - Urinary incontinence [Not Recovered/Not Resolved]
